FAERS Safety Report 24282087 (Version 1)
Quarter: 2024Q3

REPORT INFORMATION
  Report Type: Spontaneous
  Country: IT (occurrence: IT)
  Receive Date: 20240904
  Receipt Date: 20240904
  Transmission Date: 20241017
  Serious: Yes (Hospitalization, Other)
  Sender: BRISTOL MYERS SQUIBB
  Company Number: None

PATIENT
  Age: 64 Year
  Sex: Male
  Weight: 77 kg

DRUGS (3)
  1. NIVOLUMAB [Suspect]
     Active Substance: NIVOLUMAB
     Indication: Gastric cancer
     Dosage: BATCH RELATING TO THE LAST ADMINISTRATION
     Route: 042
     Dates: start: 20230228, end: 20240410
  2. AMLODIPINE\INDAPAMIDE\PERINDOPRIL [Concomitant]
     Active Substance: AMLODIPINE\INDAPAMIDE\PERINDOPRIL
     Indication: Hypertension
     Dosage: 10/2.5/10MG DAILY
     Dates: start: 20220801
  3. TOUJEO [Concomitant]
     Active Substance: INSULIN GLARGINE
     Indication: Type 2 diabetes mellitus

REACTIONS (1)
  - Immune-mediated polyserositis [Recovered/Resolved]

NARRATIVE: CASE EVENT DATE: 20240423
